FAERS Safety Report 24138125 (Version 1)
Quarter: 2024Q3

REPORT INFORMATION
  Report Type: Report from Study
  Country: US (occurrence: US)
  Receive Date: 20240725
  Receipt Date: 20240725
  Transmission Date: 20241016
  Serious: Yes (Hospitalization)
  Sender: ABBVIE
  Company Number: US-ABBVIE-5835659

PATIENT
  Age: 53 Year
  Sex: Female

DRUGS (1)
  1. SKYRIZI [Suspect]
     Active Substance: RISANKIZUMAB-RZAA
     Indication: Psoriasis
     Dosage: DOSAGE: 150 MG/ML
     Route: 058
     Dates: start: 20240620

REACTIONS (5)
  - Coma [Recovered/Resolved]
  - Pain [Not Recovered/Not Resolved]
  - Lacrimation increased [Unknown]
  - Unevaluable event [Recovering/Resolving]
  - Skin tightness [Unknown]

NARRATIVE: CASE EVENT DATE: 20240620
